FAERS Safety Report 4352038-0 (Version None)
Quarter: 2004Q2

REPORT INFORMATION
  Report Type: 
  Country: None (occurrence: None)
  Receive Date: 20040503
  Receipt Date: 20040423
  Transmission Date: 20050107
  Serious: Yes (Life-Threatening, Hospitalization, Disabling)
  Sender: FDA-Public Use
  Company Number: US-MERCK-0404USA02123

PATIENT
  Age: 52 Year
  Sex: Female

DRUGS (1)
  1. ZOCOR [Suspect]
     Indication: HYPERCHOLESTEROLAEMIA
     Route: 048
     Dates: end: 20040301

REACTIONS (3)
  - ABASIA [None]
  - COMA [None]
  - HEPATIC ENZYME INCREASED [None]
